FAERS Safety Report 9887567 (Version 1)
Quarter: 2013Q4

REPORT INFORMATION
  Report Type: Spontaneous
  Country: US (occurrence: None)
  Receive Date: 20131223
  Receipt Date: 20131223
  Transmission Date: 20140711
  Serious: No
  Sender: FDA-Public Use
  Company Number: 220478

PATIENT
  Age: 57 Year
  Sex: Female

DRUGS (1)
  1. PICATO (0.015%, GEL) [Suspect]
     Indication: PRECANCEROUS SKIN LESION
     Dosage: (DAILY), DERMAL
     Dates: start: 20130202, end: 20130202

REACTIONS (6)
  - Application site erythema [None]
  - Application site pain [None]
  - Application site vesicles [None]
  - Application site scab [None]
  - Incorrect drug administration duration [None]
  - Drug administered at inappropriate site [None]
